FAERS Safety Report 4474505-1 (Version None)
Quarter: 2004Q4

REPORT INFORMATION
  Report Type: 
  Country: None (occurrence: None)
  Receive Date: 20041014
  Receipt Date: 20041011
  Transmission Date: 20050328
  Serious: Yes (Hospitalization)
  Sender: FDA-Public Use
  Company Number: FR-SOLVAY-00204003664

PATIENT
  Age: 29 Year
  Sex: Female

DRUGS (2)
  1. 5-ASA (MANUFACTURER UNKNOWN) [Suspect]
     Indication: COLITIS ULCERATIVE
     Dosage: DAILY DOSE: 2 GRAM(S)
     Route: 048
     Dates: start: 19990101, end: 19990101
  2. 5-ASA (MANUFACTURER UNKNOWN) [Suspect]
     Dosage: DAILY DOSE: 1 GRAM(S)
     Route: 054
     Dates: start: 19990101, end: 19990101

REACTIONS (9)
  - ABDOMINAL PAIN UPPER [None]
  - ACNE [None]
  - BLOOD AMYLASE INCREASED [None]
  - DIARRHOEA HAEMORRHAGIC [None]
  - DRUG INEFFECTIVE [None]
  - DRUG TOLERANCE DECREASED [None]
  - HIRSUTISM [None]
  - LIPASE INCREASED [None]
  - PANCREATITIS ACUTE [None]
